FAERS Safety Report 6840814-1 (Version None)
Quarter: 2010Q3

REPORT INFORMATION
  Report Type: 
  Country: None (occurrence: None)
  Receive Date: 20100714
  Receipt Date: 20100707
  Transmission Date: 20110219
  Serious: Yes (Death, Other)
  Sender: FDA-Public Use
  Company Number: JP-B.I. PHARMACEUTICALS,INC./RIDGEFIELD-2010-DE-03648GD

PATIENT
  Age: 66 Year
  Sex: Male
  Weight: 41 kg

DRUGS (18)
  1. MICARDIS [Suspect]
     Route: 048
  2. LENDORMIN [Suspect]
     Route: 048
  3. VORICONAZOLE [Suspect]
     Indication: BRONCHOPULMONARY ASPERGILLOSIS
     Dosage: 600 MG
     Route: 048
     Dates: start: 20091215, end: 20091215
  4. VORICONAZOLE [Suspect]
     Dosage: 400 MG
     Route: 048
     Dates: start: 20091216, end: 20091225
  5. VORICONAZOLE [Suspect]
     Dosage: 400 MG
     Route: 042
     Dates: start: 20091226, end: 20100117
  6. ARICEPT [Suspect]
     Route: 048
  7. FLUITRAN [Suspect]
     Route: 048
  8. ASPIRIN [Suspect]
     Route: 048
  9. FLAVERIC [Suspect]
     Route: 048
  10. MUCODYNE [Suspect]
     Route: 048
  11. FAMOSTAGINE D [Suspect]
     Route: 048
  12. CRAVIT [Suspect]
     Indication: COUGH
     Route: 048
     Dates: start: 20091204, end: 20091215
  13. CRAVIT [Suspect]
     Indication: PYREXIA
  14. CRAVIT [Suspect]
     Indication: CHEST PAIN
  15. FINIBAX [Suspect]
     Indication: PNEUMONIA
     Route: 048
     Dates: start: 20091212, end: 20091215
  16. MEROPEN [Suspect]
     Indication: PYREXIA
     Dates: start: 20091219, end: 20091228
  17. INSULIN [Concomitant]
     Indication: TYPE 2 DIABETES MELLITUS
     Route: 042
     Dates: start: 20091209
  18. UNASYN [Concomitant]
     Dates: start: 20091209, end: 20091211

REACTIONS (14)
  - BACTERIAL INFECTION [None]
  - BRONCHOPULMONARY ASPERGILLOSIS [None]
  - CIRCULATORY COLLAPSE [None]
  - DISSEMINATED INTRAVASCULAR COAGULATION [None]
  - DRUG INTERACTION [None]
  - DRUG LEVEL INCREASED [None]
  - DYSPHAGIA [None]
  - EYE ROLLING [None]
  - FEELING ABNORMAL [None]
  - HICCUPS [None]
  - INTRACARDIAC THROMBUS [None]
  - MIXED LIVER INJURY [None]
  - PNEUMONIA [None]
  - RESPIRATORY FAILURE [None]
